FAERS Safety Report 15804240 (Version 2)
Quarter: 2019Q1

REPORT INFORMATION
  Report Type: Report from Study
  Country: US (occurrence: US)
  Receive Date: 20190109
  Receipt Date: 20190114
  Transmission Date: 20190417
  Serious: Yes (Other)
  Sender: FDA-Public Use
  Company Number: US-REGENERON PHARMACEUTICALS, INC.-2018-50810

PATIENT

DRUGS (18)
  1. CEMIPLIMAB [Suspect]
     Active Substance: CEMIPLIMAB
     Dosage: 350 MG,EVERY 3 WEEKS UNTIL DISEASE PROGRESSION
     Route: 042
     Dates: start: 20181010
  2. INO-5401 [Suspect]
     Active Substance: INVESTIGATIONAL PRODUCT
     Indication: GLIOBLASTOMA
     Dosage: EVERY 3 WEEKS TIMES 4 DOSE; THEN EVERY 9 WEEKS UNTIL DISEASE PROGRESSION (10MG)
     Route: 030
     Dates: start: 20180918, end: 20180918
  3. INO-9012 [Suspect]
     Active Substance: INVESTIGATIONAL PRODUCT
     Dosage: EVERY 3 WEEKS TIMES 4 DOSE; THEN EVERY 9 WEEKS UNTIL DISEASE PROGRESSION (10MG)
     Route: 030
     Dates: start: 20181010
  4. RADIOTHERAPY [Concomitant]
     Active Substance: RADIATION THERAPY
     Dosage: 2.67 GY, (6 DAYS), (13 DAYS)
     Route: 065
     Dates: start: 20181003, end: 20181016
  5. DOCUSATE SODIUM. [Concomitant]
     Active Substance: DOCUSATE SODIUM
     Indication: CONSTIPATION
     Dosage: 100 MG, AS REQUIRED
     Route: 048
     Dates: start: 20181002
  6. METOPROLOL TARTRATE. [Concomitant]
     Active Substance: METOPROLOL TARTRATE
     Indication: SUPRAVENTRICULAR TACHYCARDIA
     Dosage: 50 MG (25 MG,2 IN 1 D)
     Route: 048
  7. CEMIPLIMAB [Suspect]
     Active Substance: CEMIPLIMAB
     Indication: GLIOBLASTOMA
     Dosage: 350 MG,EVERY 3 WEEKS UNTIL DISEASE PROGRESSION
     Route: 042
     Dates: start: 20180918, end: 20180918
  8. TEMOZOLOMIDE. [Concomitant]
     Active Substance: TEMOZOLOMIDE
     Dosage: EACH NIGHT AT 75MG/M2 (130 MG), ONGOING (12 DAYS)
     Route: 048
     Dates: start: 20181003, end: 20181015
  9. INO-5401 [Suspect]
     Active Substance: INVESTIGATIONAL PRODUCT
     Dosage: EVERY 3 WEEKS TIMES 4 DOSE; THEN EVERY 9 WEEKS UNTIL DISEASE PROGRESSION (10MG)
     Route: 030
     Dates: start: 20181010
  10. LEVOTHYROXINE. [Concomitant]
     Active Substance: LEVOTHYROXINE
     Indication: HYPOTHYROIDISM
     Dosage: 50 MCG (50 MCG,1 IN 1 D)
     Route: 048
     Dates: start: 20180813
  11. KEPPRA [Concomitant]
     Active Substance: LEVETIRACETAM
     Dosage: 2000 MG (1000 MG,2 IN 1 D)
     Route: 048
     Dates: start: 20181002
  12. RADIOTHERAPY [Concomitant]
     Active Substance: RADIATION THERAPY
     Indication: GLIOBLASTOMA
     Dosage: 2.67 GY, (6 DAYS)
     Route: 065
     Dates: start: 20180925, end: 20181001
  13. POLYETHYLENE GLYCOL [Concomitant]
     Active Substance: POLYETHYLENE GLYCOLS
     Indication: CONSTIPATION
     Dosage: 17 GM, AS REQUIRED
     Route: 048
  14. INO-9012 [Suspect]
     Active Substance: INVESTIGATIONAL PRODUCT
     Indication: GLIOBLASTOMA
     Dosage: EVERY 3 WEEKS TIMES 4 DOSE; THEN EVERY 9 WEEKS UNTIL DISEASE PROGRESSION (10MG)
     Route: 030
     Dates: start: 20180918, end: 20180918
  15. KEPPRA [Concomitant]
     Active Substance: LEVETIRACETAM
     Indication: PROPHYLAXIS
     Dosage: 1000 MG (500 MG,2 IN 1 D)
     Dates: start: 20180813, end: 20181001
  16. TEMOZOLOMIDE. [Concomitant]
     Active Substance: TEMOZOLOMIDE
     Indication: GLIOBLASTOMA
     Dosage: EACH NIGHT AT 75MG/M2 (130 MG, (21 DAYS)
     Route: 048
     Dates: start: 20180910, end: 20181001
  17. ONDANSETRON [Concomitant]
     Active Substance: ONDANSETRON
     Indication: PROPHYLAXIS OF NAUSEA AND VOMITING
     Dosage: 8 MG (8 MG,1 IN 1 D)
     Route: 048
     Dates: start: 20180925
  18. LEVOTHYROXINE. [Concomitant]
     Active Substance: LEVOTHYROXINE
     Dosage: 25 MCG (25 MCG,1 IN 1 D)
     Route: 048
     Dates: start: 20181003

REACTIONS (1)
  - Tumour inflammation [Recovering/Resolving]

NARRATIVE: CASE EVENT DATE: 20181015
